FAERS Safety Report 8767610 (Version 1)
Quarter: 2012Q4

REPORT INFORMATION
  Report Type: 
  Country: US (occurrence: US)
  Receive Date: 20120904
  Receipt Date: 20120904
  Transmission Date: 20130627
  Serious: No
  Sender: FDA-Public Use
  Company Number: US-PFIZER INC-2012214376

PATIENT
  Age: 64 Year

DRUGS (7)
  1. ACCUPRIL [Suspect]
     Indication: BLOOD PRESSURE
     Dosage: 10 mg, once daily
     Route: 048
     Dates: start: 20070720
  2. LIPITOR [Suspect]
     Dosage: 20 mg, (1 QHS)
     Route: 048
     Dates: start: 20070720
  3. PLAVIX [Suspect]
     Dosage: 75 mg, once daily
     Route: 048
     Dates: start: 20070622
  4. ISOSORBIDE MONONITRATE [Suspect]
     Dosage: 60 mg, once daily
     Route: 048
     Dates: start: 20070622
  5. JANUMET [Concomitant]
     Dosage: 50-500 mg 1 po twice daily with meals
     Route: 048
     Dates: start: 20110426
  6. VERAMYST [Concomitant]
     Dosage: 27.5 mcg, 2 sprays each nostril once daily
     Dates: start: 20110221
  7. NITROGLYCERIN [Concomitant]
     Indication: CHEST PAIN
     Dosage: 1 SL q5minutes x 3 prn
     Route: 060
     Dates: start: 20100830

REACTIONS (2)
  - Chest pain [Unknown]
  - Blood pressure abnormal [Unknown]
